FAERS Safety Report 10090110 (Version 1)
Quarter: 2014Q2

REPORT INFORMATION
  Report Type: Spontaneous
  Country: US (occurrence: US)
  Receive Date: 20140421
  Receipt Date: 20140421
  Transmission Date: 20141212
  Serious: No
  Sender: FDA-Public Use
  Company Number: US-PFIZER INC-2014107128

PATIENT
  Age: 62 Year
  Sex: Female
  Weight: 65.8 kg

DRUGS (2)
  1. VENLAFAXINE HCL [Suspect]
     Indication: DEPRESSION
     Dosage: 150 MG, 3X/DAY
     Route: 048
     Dates: start: 2012, end: 2014
  2. VENLAFAXINE HCL [Suspect]
     Dosage: 75 MG, THREE TIMES A WEEK
     Route: 048
     Dates: start: 2014

REACTIONS (3)
  - Abnormal dreams [Not Recovered/Not Resolved]
  - Middle insomnia [Not Recovered/Not Resolved]
  - Sleep terror [Not Recovered/Not Resolved]
